FAERS Safety Report 22162669 (Version 1)
Quarter: 2023Q1

REPORT INFORMATION
  Report Type: Spontaneous
  Country: GB (occurrence: GB)
  Receive Date: 20230331
  Receipt Date: 20230331
  Transmission Date: 20230418
  Serious: Yes (Other)
  Sender: FDA-Public Use
  Company Number: GB-UCBSA-2023016462

PATIENT

DRUGS (1)
  1. KEPPRA [Suspect]
     Active Substance: LEVETIRACETAM
     Indication: Severe myoclonic epilepsy of infancy
     Dosage: UNK

REACTIONS (2)
  - Seizure [Unknown]
  - Drug ineffective [Unknown]
